FAERS Safety Report 6356513-9 (Version None)
Quarter: 2009Q3

REPORT INFORMATION
  Report Type: 
  Country: None (occurrence: None)
  Receive Date: 20090915
  Receipt Date: 20090908
  Transmission Date: 20100115
  Serious: Yes (Other)
  Sender: FDA-Public Use
  Company Number: B0592735A

PATIENT
  Age: 84 Year
  Sex: Male

DRUGS (1)
  1. PAXIL [Suspect]
     Indication: DRUG USE FOR UNKNOWN INDICATION
     Dosage: 10MG UNKNOWN
     Route: 048

REACTIONS (3)
  - DELIRIUM [None]
  - DRUG WITHDRAWAL SYNDROME [None]
  - PERSECUTORY DELUSION [None]
